FAERS Safety Report 10725095 (Version 1)
Quarter: 2015Q1

REPORT INFORMATION
  Report Type: Spontaneous
  Country: HR (occurrence: HR)
  Receive Date: 20150120
  Receipt Date: 20150120
  Transmission Date: 20150721
  Serious: Yes (Hospitalization)
  Sender: FDA-Public Use
  Company Number: HR-TEVA-534715ISR

PATIENT
  Age: 51 Year
  Sex: Female

DRUGS (2)
  1. CISPLATIN PLIVA [Suspect]
     Active Substance: CISPLATIN
     Indication: NEOPLASM MALIGNANT
     Route: 041
     Dates: start: 20140319, end: 20140319
  2. CISPLATIN PFIZER [Suspect]
     Active Substance: CISPLATIN
     Indication: NEOPLASM MALIGNANT
     Route: 041
     Dates: start: 20140319, end: 20140319

REACTIONS (4)
  - Stomatitis [Recovered/Resolved]
  - Staphylococcal skin infection [Recovered/Resolved]
  - Febrile neutropenia [Recovered/Resolved]
  - Anaemia [Recovered/Resolved]

NARRATIVE: CASE EVENT DATE: 20140429
